FAERS Safety Report 8764302 (Version 2)
Quarter: 2012Q4

REPORT INFORMATION
  Report Type: 
  Country: US (occurrence: US)
  Receive Date: 20120831
  Receipt Date: 20120912
  Transmission Date: 20130627
  Serious: Yes (Hospitalization)
  Sender: FDA-Public Use
  Company Number: US-UCBSA-064663

PATIENT
  Age: 22 Year
  Sex: Female

DRUGS (4)
  1. VIMPAT [Suspect]
     Indication: CONVULSION
  2. KEPPRA [Concomitant]
     Dosage: 750 TABLETS 2 IN THE MORNING AND 2 IN THE EVENING
  3. PHENOBARBITAL [Concomitant]
  4. TOPAMAX [Concomitant]

REACTIONS (3)
  - Jaw fracture [Not Recovered/Not Resolved]
  - Convulsion [Not Recovered/Not Resolved]
  - Fall [Unknown]
